FAERS Safety Report 19139108 (Version 1)
Quarter: 2021Q2

REPORT INFORMATION
  Report Type: Spontaneous
  Country: PT (occurrence: PT)
  Receive Date: 20210415
  Receipt Date: 20210415
  Transmission Date: 20210717
  Serious: Yes (Other)
  Sender: FDA-Public Use
  Company Number: PT-TEVA-2021-PT-1900352

PATIENT
  Age: 81 Year
  Sex: Female

DRUGS (5)
  1. TRIMETAZIDINE [Concomitant]
     Active Substance: TRIMETAZIDINE
  2. MIRTAZAPINE. [Suspect]
     Active Substance: MIRTAZAPINE
     Dosage: 15 MG
     Route: 048
  3. ESCITALOPRAM [Concomitant]
     Active Substance: ESCITALOPRAM OXALATE
  4. LORAZEPAM. [Concomitant]
     Active Substance: LORAZEPAM
     Dosage: PREVIOUSLY MADE LORAZEPAM 2, 5 ?1 AND A HALF TABLETS PER NIGHT, HAVING REDUCED IT TO 1
     Route: 048
  5. MELATONIN [Suspect]
     Active Substance: MELATONIN
     Route: 048

REACTIONS (3)
  - Headache [Recovered/Resolved]
  - Memory impairment [Recovered/Resolved]
  - Disorientation [Recovered/Resolved]
